FAERS Safety Report 8014734-3 (Version None)
Quarter: 2011Q4

REPORT INFORMATION
  Report Type: 
  Country: None (occurrence: None)
  Receive Date: 20111229
  Receipt Date: 20111221
  Transmission Date: 20120403
  Serious: Yes (Other)
  Sender: FDA-Public Use
  Company Number: US-AMGEN-USASP2011068461

PATIENT
  Sex: Male

DRUGS (2)
  1. PROVENGE [Concomitant]
  2. XGEVA [Suspect]
     Indication: METASTASES TO BONE
     Dosage: 120 MG, Q4WK

REACTIONS (2)
  - BONE SCAN ABNORMAL [None]
  - NEOPLASM MALIGNANT [None]
